FAERS Safety Report 16450905 (Version 2)
Quarter: 2019Q2

REPORT INFORMATION
  Report Type: Spontaneous
  Country: JP (occurrence: JP)
  Receive Date: 20190619
  Receipt Date: 20190626
  Transmission Date: 20190711
  Serious: Yes (Other)
  Sender: FDA-Public Use
  Company Number: JP-PFIZER INC-2019257548

PATIENT
  Age: 69 Year
  Sex: Female

DRUGS (3)
  1. DOCETAXEL. [Suspect]
     Active Substance: DOCETAXEL
     Indication: NON-SMALL CELL LUNG CANCER STAGE I
     Dosage: 60 MG/M2, EVERY 3 WEEKS (AFTER EIGHT COURSES)
     Route: 042
  2. BEVACIZUMAB. [Suspect]
     Active Substance: BEVACIZUMAB
     Indication: NON-SMALL CELL LUNG CANCER STAGE I
     Dosage: UNK, CYCLIC (RECEIVED 38 COURSES)
  3. RAMUCIRUMAB [Suspect]
     Active Substance: RAMUCIRUMAB
     Indication: NON-SMALL CELL LUNG CANCER STAGE I
     Dosage: 10 MG/KG, EVERY 3 WEEKS (AFTER EIGHT COURSES)
     Route: 042

REACTIONS (2)
  - Ascites [Not Recovered/Not Resolved]
  - Chylothorax [Not Recovered/Not Resolved]
